FAERS Safety Report 18114432 (Version 1)
Quarter: 2020Q3

REPORT INFORMATION
  Report Type: Spontaneous
  Country: NL (occurrence: NL)
  Receive Date: 20200805
  Receipt Date: 20200805
  Transmission Date: 20201103
  Serious: Yes (Other)
  Sender: FDA-Public Use
  Company Number: NL-PFIZER INC-2020296550

PATIENT
  Age: 80 Year
  Sex: Male

DRUGS (1)
  1. RAMIPRIL. [Suspect]
     Active Substance: RAMIPRIL
     Dosage: UNK
     Route: 065
     Dates: start: 20190925

REACTIONS (3)
  - Vocal cord thickening [Unknown]
  - Dysphonia [Unknown]
  - Foreign body in throat [Unknown]

NARRATIVE: CASE EVENT DATE: 2020
